FAERS Safety Report 4551502-9 (Version None)
Quarter: 2005Q1

REPORT INFORMATION
  Report Type: 
  Country: None (occurrence: None)
  Receive Date: 20050111
  Receipt Date: 20041230
  Transmission Date: 20050727
  Serious: Yes (Other)
  Sender: FDA-Public Use
  Company Number: 200510003BCC

PATIENT
  Age: 53 Year
  Sex: Female
  Weight: 90.7194 kg

DRUGS (8)
  1. ALEVE (CAPLET) [Suspect]
     Indication: PAIN
     Dosage: 220 MG, ONCE, ORAL; SEE IMAGE
     Route: 048
     Dates: start: 20041001
  2. ALEVE (CAPLET) [Suspect]
     Indication: PSORIASIS
     Dosage: 220 MG, ONCE, ORAL; SEE IMAGE
     Route: 048
     Dates: start: 20041001
  3. ALEVE (CAPLET) [Suspect]
     Indication: PAIN
     Dosage: 220 MG, ONCE, ORAL; SEE IMAGE
     Route: 048
     Dates: start: 20041218
  4. ALEVE (CAPLET) [Suspect]
     Indication: PSORIASIS
     Dosage: 220 MG, ONCE, ORAL; SEE IMAGE
     Route: 048
     Dates: start: 20041218
  5. TRIAMCINOLONE ACETONIDE [Concomitant]
  6. MULTIVITAMIN AND MINERAL SUPPLEMENT [Concomitant]
  7. TUMS [Concomitant]
  8. FLAX SEED OIL [Concomitant]

REACTIONS (3)
  - CHEST PAIN [None]
  - EXTRASYSTOLES [None]
  - PALPITATIONS [None]
